FAERS Safety Report 8059377-0 (Version None)
Quarter: 2012Q1

REPORT INFORMATION
  Report Type: 
  Country: None (occurrence: None)
  Receive Date: 20120119
  Receipt Date: 20120119
  Transmission Date: 20120608
  Serious: Yes (Other)
  Sender: FDA-Public Use
  Company Number: None

PATIENT
  Sex: Female
  Weight: 74.3899 kg

DRUGS (1)
  1. ACTOS [Suspect]
     Dosage: ACTOS 15-30 PO QD
     Route: 048
     Dates: end: 20111201

REACTIONS (1)
  - BLADDER CANCER [None]
